FAERS Safety Report 11062556 (Version 1)
Quarter: 2015Q2

REPORT INFORMATION
  Report Type: Spontaneous
  Country: IR (occurrence: None)
  Receive Date: 20150422
  Receipt Date: 20150422
  Transmission Date: 20150821
  Serious: Yes (Other)
  Sender: FDA-Public Use
  Company Number: NSR_02047_2015

PATIENT
  Age: 24 Year
  Sex: Male

DRUGS (1)
  1. TRAMADOL (TRAMADOL) 100 MG [Suspect]
     Active Substance: TRAMADOL
     Indication: PRODUCT USED FOR UNKNOWN INDICATION
     Dosage: (1000 MG, 10 DF [NOT THE PRESCRIBED AMOUNT])

REACTIONS (8)
  - Intentional overdose [None]
  - Toxicity to various agents [None]
  - Tooth fracture [None]
  - Seizure [None]
  - Lethargy [None]
  - Drug abuse [None]
  - Confusional state [None]
  - Drug diversion [None]
